FAERS Safety Report 24677941 (Version 2)
Quarter: 2025Q3

REPORT INFORMATION
  Report Type: Report from Study
  Country: CA (occurrence: CA)
  Receive Date: 20241129
  Receipt Date: 20250810
  Transmission Date: 20251021
  Serious: Yes (Hospitalization, Other)
  Sender: ALEXION PHARMACEUTICALS
  Company Number: CA-AstraZeneca-CH-00736323A

PATIENT
  Sex: Male

DRUGS (4)
  1. TEZEPELUMAB [Suspect]
     Active Substance: TEZEPELUMAB
     Indication: Asthma
  2. TEZEPELUMAB [Suspect]
     Active Substance: TEZEPELUMAB
  3. VENTOLIN [Concomitant]
     Active Substance: ALBUTEROL SULFATE
     Route: 065
  4. FLOVENT [Concomitant]
     Active Substance: FLUTICASONE PROPIONATE
     Route: 065

REACTIONS (8)
  - Dizziness [Unknown]
  - Fatigue [Unknown]
  - Muscle spasms [Unknown]
  - Depressed level of consciousness [Unknown]
  - Oxygen saturation decreased [Unknown]
  - Pleural effusion [Unknown]
  - Pericardial effusion [Unknown]
  - Pneumonia [Unknown]
